FAERS Safety Report 24941402 (Version 2)
Quarter: 2025Q1

REPORT INFORMATION
  Report Type: Report from Study
  Country: US (occurrence: US)
  Receive Date: 20250207
  Receipt Date: 20250226
  Transmission Date: 20250409
  Serious: Yes (Death)
  Sender: BAUSCH AND LOMB
  Company Number: US-BAUSCH-BL-2025-000436

PATIENT
  Age: 70 Year
  Sex: Female

DRUGS (1)
  1. XIFAXAN [Suspect]
     Active Substance: RIFAXIMIN
     Indication: Metabolic dysfunction-associated liver disease
     Route: 048
     Dates: start: 202411

REACTIONS (5)
  - Hepatic failure [Fatal]
  - Renal failure [Fatal]
  - Wrong technique in product usage process [Unknown]
  - Product size issue [Unknown]
  - Product use complaint [Unknown]

NARRATIVE: CASE EVENT DATE: 20240101
